FAERS Safety Report 6130617-8 (Version None)
Quarter: 2009Q1

REPORT INFORMATION
  Report Type: 
  Country: None (occurrence: None)
  Receive Date: 20090325
  Receipt Date: 20090311
  Transmission Date: 20090719
  Serious: Yes (Hospitalization, Disabling, Other)
  Sender: FDA-Public Use
  Company Number: PHHY2009GB06633

PATIENT
  Sex: Male

DRUGS (13)
  1. CLOZARIL [Suspect]
     Indication: SCHIZOPHRENIA
     Dosage: UNK
     Dates: start: 20020527
  2. CLOZARIL [Suspect]
     Dosage: 400 MG, UNK
  3. CLOZARIL [Suspect]
     Dosage: UNK
     Dates: start: 20070201
  4. CLOZARIL [Suspect]
     Dosage: UNK
     Dates: start: 20090113
  5. CLOPIXOL DEPOT [Concomitant]
  6. PIPORTIL DEPOT [Concomitant]
     Dosage: 100 MG, UNK
  7. FLUOXETINE [Concomitant]
     Dosage: 20 MG, QMO
  8. LORAZEPAM [Concomitant]
     Dosage: 1 MG, BID
  9. OLANZAPINE [Concomitant]
  10. HALOPERIDOL [Concomitant]
     Dosage: UNK
  11. VALPROATE SODIUM [Concomitant]
  12. CLOPIXOL ACUPHASE [Concomitant]
  13. ZUCLOPENTHIXOL [Concomitant]
     Dosage: 500 MG, QW

REACTIONS (26)
  - AGGRESSION [None]
  - AGITATION [None]
  - ANTISOCIAL BEHAVIOUR [None]
  - ANXIETY [None]
  - BINGE EATING [None]
  - CATATONIA [None]
  - CONDITION AGGRAVATED [None]
  - CONVULSION [None]
  - DELUSION [None]
  - DEPRESSED MOOD [None]
  - DISTURBANCE IN SOCIAL BEHAVIOUR [None]
  - DYSPHAGIA [None]
  - EATING DISORDER [None]
  - HALLUCINATION, AUDITORY [None]
  - HALLUCINATION, VISUAL [None]
  - HYPONATRAEMIA [None]
  - IMPAIRED SELF-CARE [None]
  - OBSESSIVE-COMPULSIVE DISORDER [None]
  - POLYDIPSIA [None]
  - POOR QUALITY SLEEP [None]
  - REPETITIVE SPEECH [None]
  - RESTLESSNESS [None]
  - SCHIZOPHRENIA [None]
  - TREATMENT NONCOMPLIANCE [None]
  - URINARY INCONTINENCE [None]
  - WEIGHT DECREASED [None]
